FAERS Safety Report 5707775-X (Version None)
Quarter: 2008Q2

REPORT INFORMATION
  Report Type: 
  Country: None (occurrence: None)
  Receive Date: 20080417
  Receipt Date: 20080414
  Transmission Date: 20081010
  Serious: Yes (Hospitalization)
  Sender: FDA-Public Use
  Company Number: FR-BRISTOL-MYERS SQUIBB COMPANY-14151054

PATIENT
  Age: 53 Year
  Sex: Male

DRUGS (2)
  1. AMIKACIN SULFATE [Suspect]
     Indication: INFECTION
     Route: 042
     Dates: start: 20080225
  2. TIENAM [Suspect]
     Indication: INFECTION
     Dates: start: 20080225

REACTIONS (2)
  - PRURITUS [None]
  - URTICARIA [None]
